FAERS Safety Report 5456117-6 (Version None)
Quarter: 2007Q3

REPORT INFORMATION
  Report Type: 
  Country: None (occurrence: None)
  Receive Date: 20070918
  Receipt Date: 20070228
  Transmission Date: 20080115
  Serious: Yes (Other)
  Sender: FDA-Public Use
  Company Number: US-ASTRAZENECA-2006UW22845

PATIENT
  Sex: Male
  Weight: 143.2 kg

DRUGS (6)
  1. SEROQUEL [Suspect]
     Indication: MENTAL DISORDER
     Route: 048
  2. ABILIFY [Concomitant]
     Dates: start: 20010101
  3. CLOZARIL [Concomitant]
     Dates: start: 20010101
  4. HALDOL [Concomitant]
     Dates: start: 20060101
  5. RISPERDAL [Concomitant]
     Dates: start: 20010101
  6. ZYPREXA [Concomitant]
     Dates: start: 20010101

REACTIONS (3)
  - DIABETES MELLITUS [None]
  - MENTAL DISORDER [None]
  - PANCREATITIS [None]
